FAERS Safety Report 23744703 (Version 1)
Quarter: 2024Q2

REPORT INFORMATION
  Report Type: Spontaneous
  Country: US (occurrence: None)
  Receive Date: 20240415
  Receipt Date: 20240415
  Transmission Date: 20240715
  Serious: No
  Sender: FDA-Public Use
  Company Number: 2024A075045

PATIENT
  Sex: Female

DRUGS (1)
  1. BUDESONIDE\FORMOTEROL [Suspect]
     Active Substance: BUDESONIDE\FORMOTEROL
     Route: 055
     Dates: start: 20240307

REACTIONS (5)
  - Dysphonia [Unknown]
  - Wrong technique in device usage process [Unknown]
  - Product taste abnormal [Unknown]
  - Incorrect dose administered [Unknown]
  - Intentional product misuse [Unknown]
